APPROVED DRUG PRODUCT: DONEPEZIL HYDROCHLORIDE
Active Ingredient: DONEPEZIL HYDROCHLORIDE
Strength: 5MG
Dosage Form/Route: TABLET;ORAL
Application: A203656 | Product #001
Applicant: UNICHEM LABORATORIES LTD
Approved: Jun 23, 2016 | RLD: No | RS: No | Type: DISCN